FAERS Safety Report 8077804-X (Version None)
Quarter: 2012Q1

REPORT INFORMATION
  Report Type: 
  Country: None (occurrence: None)
  Receive Date: 20120127
  Receipt Date: 20120125
  Transmission Date: 20120608
  Serious: Yes (Hospitalization, Disabling, Other)
  Sender: FDA-Public Use
  Company Number: BE-ABBOTT-11P-013-0844021-00

PATIENT
  Age: 38 Year
  Sex: Male

DRUGS (1)
  1. HUMIRA [Suspect]
     Indication: CROHN'S DISEASE
     Route: 058
     Dates: start: 20110401, end: 20110727

REACTIONS (6)
  - MALAISE [None]
  - MULTIPLE SCLEROSIS [None]
  - CHEST PAIN [None]
  - PNEUMONIA [None]
  - INFLAMMATION [None]
  - GUILLAIN-BARRE SYNDROME [None]
